FAERS Safety Report 12799372 (Version 6)
Quarter: 2017Q1

REPORT INFORMATION
  Report Type: Report from Study
  Country: US (occurrence: US)
  Receive Date: 20160930
  Receipt Date: 20170321
  Transmission Date: 20170428
  Serious: Yes (Hospitalization, Other)
  Sender: FDA-Public Use
  Company Number: US-GILEAD-2016-0235906

PATIENT
  Age: 78 Year
  Sex: Female
  Weight: 60.77 kg

DRUGS (11)
  1. WARFARIN [Concomitant]
     Active Substance: WARFARIN
  2. SYNTHROID [Concomitant]
     Active Substance: LEVOTHYROXINE SODIUM
  3. DIGOX                              /00017701/ [Concomitant]
  4. ORENITRAM [Concomitant]
     Active Substance: TREPROSTINIL
  5. BUMETANIDE. [Concomitant]
     Active Substance: BUMETANIDE
  6. SILDENAFIL CITRATE. [Concomitant]
     Active Substance: SILDENAFIL CITRATE
  7. SPIRONOLACTONE. [Concomitant]
     Active Substance: SPIRONOLACTONE
  8. AMBRISENTAN [Suspect]
     Active Substance: AMBRISENTAN
     Indication: PULMONARY HYPERTENSION
  9. SILDENAFIL. [Concomitant]
     Active Substance: SILDENAFIL
  10. SPIRIVA [Concomitant]
     Active Substance: TIOTROPIUM BROMIDE MONOHYDRATE
  11. AMBRISENTAN [Suspect]
     Active Substance: AMBRISENTAN
     Indication: PULMONARY ARTERIAL HYPERTENSION
     Dosage: 10 MG, QD
     Route: 048
     Dates: start: 20141215

REACTIONS (13)
  - Fluid retention [Unknown]
  - Asthenia [Not Recovered/Not Resolved]
  - Cellulitis [Unknown]
  - Lethargy [Not Recovered/Not Resolved]
  - Arthropod bite [Unknown]
  - Dermatitis contact [Unknown]
  - Insomnia [Unknown]
  - Cardiac failure congestive [Unknown]
  - Dyspnoea [Unknown]
  - Oedema peripheral [Unknown]
  - Blister [Unknown]
  - Right ventricular failure [Unknown]
  - Pruritus [Unknown]

NARRATIVE: CASE EVENT DATE: 201609
